FAERS Safety Report 8909290 (Version 7)
Quarter: 2015Q1

REPORT INFORMATION
  Report Type: Spontaneous
  Country: JP (occurrence: None)
  Receive Date: 20121107
  Receipt Date: 20150112
  Transmission Date: 20150721
  Serious: Yes (Hospitalization, Other)
  Sender: FDA-Public Use
  Company Number: 2010JP003335

PATIENT
  Age: 25 Year
  Sex: Female
  Weight: 62 kg

DRUGS (23)
  1. BONALON (ALENDRONATE SODIUM) [Concomitant]
  2. TAKEPRON (LANASOPRAZOLE) [Concomitant]
  3. YODEL-S (SENNA ALEXANDRINA EXTRACT) [Concomitant]
  4. HEMOLINGUAL (VENOUS PLEXUS EXTRACT) [Concomitant]
  5. PARIET (RABEPRAZOLE SODIUM) [Concomitant]
  6. PREDONINE [Suspect]
     Active Substance: PREDNISOLONE\PREDNISOLONE ACETATE\PREDNISOLONE SODIUM SUCCINATE
     Indication: LUPUS NEPHRITIS
     Route: 048
     Dates: end: 20100819
  7. DAIO-KANZO-TO (DAIO-KANZO-TO) [Concomitant]
  8. IMURAN [Concomitant]
     Active Substance: AZATHIOPRINE
  9. LENDORMIN (BROTIZOLAM) [Concomitant]
  10. GASMOTIN (MOSAPRIDE CITRATE) [Concomitant]
     Active Substance: MOSAPRIDE CITRATE
  11. BREDININ (MIZORIBINE) [Concomitant]
     Active Substance: MIZORIBINE
  12. MAGMITT (MAGNESIUM OXIDE) [Concomitant]
     Active Substance: MAGNESIUM OXIDE
  13. KYUKIKYOGAITO (ANGELICA ACUTILOBA ROOT, ARTEMISIA ARGYI LEAF, CNIDIUM OFFICINALE RHIZOME, GLYCYRRHZA SPP. ROOT, PAEONIA LACTIFLORA ROOT, REHMANNIA GLUTINOSA ROOT) [Concomitant]
  14. SELENICA-R (SODIUM VALPROATE) [Concomitant]
  15. MICARDIS [Concomitant]
     Active Substance: TELMISARTAN
  16. POSTERISAN FORTE  (ESCHERICHIA COLI, HYDROCORTISONE) ? [Concomitant]
  17. PROGRAF [Suspect]
     Active Substance: TACROLIMUS\TACROLIMUS ANHYDROUS
     Indication: LUPUS NEPHRITIS
     Route: 048
     Dates: start: 20070620, end: 20070717
  18. ROHYPNOL (FLUNITRAZEPAM) [Concomitant]
     Active Substance: FLUNITRAZEPAM
  19. JUVELA N (TOCOPHEROL NICOTINATE) [Concomitant]
  20. SELBEX (TEPRENONE) [Concomitant]
     Active Substance: TEPRENONE
  21. RHUBARB (RHUBARB) POWDER (EXCEPT DUSTING POWDER) [Concomitant]
  22. VASOLAN (VERAPAMIL HYDROCHLORIDE) ? [Concomitant]
  23. BUFFERIN [Concomitant]
     Active Substance: ASPIRIN

REACTIONS (9)
  - Antiphospholipid syndrome [None]
  - Cardiac failure [None]
  - Haemorrhoids [None]
  - Cystitis [None]
  - Systemic lupus erythematosus [None]
  - Condition aggravated [None]
  - Mitral valve stenosis [None]
  - Hypertension [None]
  - Insomnia [None]

NARRATIVE: CASE EVENT DATE: 20071226
